FAERS Safety Report 10549993 (Version 1)
Quarter: 2014Q4

REPORT INFORMATION
  Report Type: Spontaneous
  Country: US (occurrence: US)
  Receive Date: 20141028
  Receipt Date: 20141028
  Transmission Date: 20150529
  Serious: Yes (Other)
  Sender: FDA-Public Use
  Company Number: US-BAUSCH-BL-2014-007133

PATIENT
  Sex: Female

DRUGS (5)
  1. MYSOLINE [Suspect]
     Active Substance: PRIMIDONE
     Indication: PRODUCT USED FOR UNKNOWN INDICATION
  2. FYCOMPA [Suspect]
     Active Substance: PERAMPANEL
     Indication: PRODUCT USED FOR UNKNOWN INDICATION
  3. DILANTIN [Suspect]
     Active Substance: PHENYTOIN
  4. DILANTIN [Suspect]
     Active Substance: PHENYTOIN
  5. DILANTIN [Suspect]
     Active Substance: PHENYTOIN
     Indication: PRODUCT USED FOR UNKNOWN INDICATION

REACTIONS (6)
  - Lethargy [Unknown]
  - Balance disorder [Unknown]
  - Drug intolerance [Unknown]
  - Drug level decreased [Unknown]
  - Dizziness [Unknown]
  - Seizure [Unknown]

NARRATIVE: CASE EVENT DATE: 201406
